FAERS Safety Report 9680368 (Version 1)
Quarter: 2013Q4

REPORT INFORMATION
  Report Type: Spontaneous
  Country: CH (occurrence: CH)
  Receive Date: 20131111
  Receipt Date: 20131111
  Transmission Date: 20140711
  Serious: Yes (Hospitalization)
  Sender: FDA-Public Use
  Company Number: CH-AMGEN-CHESP2013078454

PATIENT
  Age: 87 Year
  Sex: Female

DRUGS (20)
  1. PROLIA [Suspect]
     Indication: PRODUCT USED FOR UNKNOWN INDICATION
     Dosage: 60 MG, 1 DF,
     Route: 058
     Dates: start: 20130929, end: 20130929
  2. DIAMICRON [Concomitant]
     Dosage: UNK
  3. EUTHYROX [Concomitant]
     Dosage: UNK
  4. FUROSPIR [Concomitant]
     Dosage: UNK
  5. LAXOBERON [Concomitant]
     Dosage: UNK
  6. MEPHANOL [Concomitant]
  7. METOLAZONE [Concomitant]
     Dosage: UNK
  8. MOVICOL                            /01625101/ [Concomitant]
     Dosage: UNK
  9. PANTOZOL                           /01263204/ [Concomitant]
     Dosage: UNK
  10. PARAGOL [Concomitant]
     Dosage: UNK
  11. SINTROM [Concomitant]
     Dosage: UNK
  12. TEMESTA                            /00273201/ [Concomitant]
     Dosage: UNK
  13. VITAMIN D3 WILD [Concomitant]
     Dosage: 12 GTT DROPS, QWK
  14. OLFEN                              /00372302/ [Concomitant]
     Dosage: UNK
  15. LANTUS [Concomitant]
     Dosage: UNK
  16. ATROVENT [Concomitant]
     Dosage: UNK
  17. VENTOLIN                           /00139501/ [Concomitant]
     Dosage: UNK
  18. SPIRIVA [Concomitant]
     Dosage: UNK
  19. FENTANYL [Concomitant]
     Dosage: UNK
  20. ALVESCO [Concomitant]
     Dosage: UNK

REACTIONS (3)
  - Tremor [Recovered/Resolved]
  - Muscle spasms [Recovered/Resolved]
  - Hypocalcaemia [Recovering/Resolving]
